FAERS Safety Report 6800999-X (Version None)
Quarter: 2010Q2

REPORT INFORMATION
  Report Type: 
  Country: None (occurrence: None)
  Receive Date: 20100624
  Receipt Date: 20100609
  Transmission Date: 20101027
  Serious: Yes (Death, Hospitalization)
  Sender: FDA-Public Use
  Company Number: 2010BI001926

PATIENT
  Age: 48 Year
  Sex: Male

DRUGS (5)
  1. ZEVALIN [Suspect]
     Indication: NON-HODGKIN'S LYMPHOMA
     Dosage: ; 1X; IV
     Route: 042
     Dates: start: 20070301, end: 20070301
  2. ZEVALIN [Suspect]
     Indication: STEM CELL TRANSPLANT
     Dosage: ; 1X; IV
     Route: 042
     Dates: start: 20070301, end: 20070301
  3. RITUXIMAB [Concomitant]
  4. CYCLOSPORINE [Concomitant]
  5. FLUDARABINE [Concomitant]

REACTIONS (3)
  - APHASIA [None]
  - CEREBRAL HAEMORRHAGE [None]
  - HEMIPLEGIA [None]
